FAERS Safety Report 20057462 (Version 1)
Quarter: 2021Q4

REPORT INFORMATION
  Report Type: Spontaneous
  Country: US (occurrence: None)
  Receive Date: 20211110
  Receipt Date: 20211110
  Transmission Date: 20220303
  Serious: Yes (Other)
  Sender: FDA-Public Use
  Company Number: None

PATIENT
  Age: 27 Year
  Sex: Female

DRUGS (2)
  1. BAMLANIVIMAB [Suspect]
     Active Substance: BAMLANIVIMAB
     Indication: COVID-19
     Dosage: OTHER FREQUENCY : ONCE;?
     Route: 042
     Dates: start: 20211110, end: 20211110
  2. ETESEVIMAB [Suspect]
     Active Substance: ETESEVIMAB
     Indication: COVID-19
     Dosage: OTHER FREQUENCY : ONCE;?
     Route: 042
     Dates: start: 20211110, end: 20211110

REACTIONS (7)
  - Chest pain [None]
  - Gastrointestinal pain [None]
  - Visual impairment [None]
  - Deafness [None]
  - Respiratory rate increased [None]
  - Heart rate increased [None]
  - Hypertension [None]

NARRATIVE: CASE EVENT DATE: 20211110
